FAERS Safety Report 25415907 (Version 1)
Quarter: 2025Q2

REPORT INFORMATION
  Report Type: Spontaneous
  Country: CN (occurrence: CN)
  Receive Date: 20250610
  Receipt Date: 20250610
  Transmission Date: 20250716
  Serious: Yes (Other)
  Sender: VALIDUS
  Company Number: CN-VALIDUS PHARMACEUTICALS LLC-VLDS-RB-2025-00058

PATIENT

DRUGS (1)
  1. CARBAMAZEPINE [Suspect]
     Active Substance: CARBAMAZEPINE
     Indication: Depression
     Route: 048

REACTIONS (3)
  - Osteonecrosis [Recovering/Resolving]
  - Peripheral nerve injury [Recovering/Resolving]
  - Drug level increased [Recovering/Resolving]
